FAERS Safety Report 4319671-3 (Version None)
Quarter: 2004Q1

REPORT INFORMATION
  Report Type: 
  Country: None (occurrence: None)
  Receive Date: 20040316
  Receipt Date: 20040304
  Transmission Date: 20041129
  Serious: Yes (Hospitalization)
  Sender: FDA-Public Use
  Company Number: US-JNJFOC-20040302564

PATIENT
  Age: 54 Year
  Sex: Female

DRUGS (13)
  1. DURAGESIC [Suspect]
     Indication: PAIN
     Dosage: 75 UG, 1 IN 72 HOUR, TRANSDERMAL
     Route: 062
     Dates: start: 20020101
  2. ASPIRIN [Concomitant]
  3. FLUOXETINE [Concomitant]
  4. LISINOPRIL [Concomitant]
  5. SULAR [Concomitant]
  6. HYDROMORPHONE (HYDROMOPRHONE) [Concomitant]
  7. ATENOLOL [Concomitant]
  8. LIPITOR [Concomitant]
  9. ADVAIR (SERETIDE MITE) [Concomitant]
  10. OXYGEN (OXYGEN) [Concomitant]
  11. ALBUTEROL [Concomitant]
  12. NEBULIZER (OTHER RESPIRATORY SYSTEM PRODUCT) [Concomitant]
  13. NAPROXEN [Concomitant]

REACTIONS (8)
  - BLOOD PRESSURE INCREASED [None]
  - DRUG WITHDRAWAL SYNDROME [None]
  - ELECTROCARDIOGRAM ABNORMAL [None]
  - HYPOAESTHESIA [None]
  - HYPOAESTHESIA ORAL [None]
  - MIGRAINE [None]
  - PARAESTHESIA [None]
  - PHARYNGEAL HYPOAESTHESIA [None]
